FAERS Safety Report 6963955-7 (Version None)
Quarter: 2010Q3

REPORT INFORMATION
  Report Type: 
  Country: None (occurrence: None)
  Receive Date: 20100902
  Receipt Date: 20100902
  Transmission Date: 20110219
  Serious: Yes (Disabling)
  Sender: FDA-Public Use
  Company Number: None

PATIENT
  Age: 80 Year
  Sex: Female
  Weight: 45.3597 kg

DRUGS (4)
  1. XIBROM [Suspect]
     Indication: EYE OPERATION
     Dosage: 1 DROP, B.I.D. -EYE
     Dates: start: 20100822
  2. XIBROM [Suspect]
     Indication: PREOPERATIVE CARE
     Dosage: 1 DROP, B.I.D. -EYE
     Dates: start: 20100822
  3. XIBROM [Suspect]
     Indication: EYE OPERATION
     Dosage: 1 DROP, B.I.D. -EYE
     Dates: start: 20100823
  4. XIBROM [Suspect]
     Indication: PREOPERATIVE CARE
     Dosage: 1 DROP, B.I.D. -EYE
     Dates: start: 20100823

REACTIONS (4)
  - ABDOMINAL DISTENSION [None]
  - DIZZINESS [None]
  - TREMOR [None]
  - VISUAL IMPAIRMENT [None]
